FAERS Safety Report 12950938 (Version 4)
Quarter: 2017Q1

REPORT INFORMATION
  Report Type: Report from Study
  Country: AR (occurrence: AR)
  Receive Date: 20161117
  Receipt Date: 20170119
  Transmission Date: 20170428
  Serious: Yes (Hospitalization)
  Sender: FDA-Public Use
  Company Number: AR-JNJFOC-20161004183

PATIENT
  Age: 56 Year
  Sex: Male
  Weight: 74 kg

DRUGS (2)
  1. INFLIXIMAB, RECOMBINANT [Suspect]
     Active Substance: INFLIXIMAB
     Indication: PSORIASIS
     Route: 042
     Dates: start: 201206, end: 201207
  2. SECUKINUMAB [Concomitant]
     Active Substance: SECUKINUMAB
     Route: 065
     Dates: start: 201604, end: 201608

REACTIONS (4)
  - Bacteraemia [Recovered/Resolved]
  - Cholangitis infective [Recovered/Resolved]
  - Bile duct stone [Recovered/Resolved]
  - Cholangitis [Recovered/Resolved with Sequelae]

NARRATIVE: CASE EVENT DATE: 20160926
